FAERS Safety Report 13774433 (Version 1)
Quarter: 2017Q3

REPORT INFORMATION
  Report Type: Spontaneous
  Country: GB (occurrence: GB)
  Receive Date: 20170720
  Receipt Date: 20170720
  Transmission Date: 20171127
  Serious: Yes (Other)
  Sender: FDA-Public Use
  Company Number: GB-PFIZER INC-1581714

PATIENT
  Age: 60 Year
  Sex: Male

DRUGS (1)
  1. VANCOMYCIN HCL [Suspect]
     Active Substance: VANCOMYCIN HYDROCHLORIDE
     Indication: PNEUMONIA
     Dosage: 24 HOUR INFUSION DOSED ACCORDING TO THERAPEUTIC DRUG MONITORING
     Route: 041
     Dates: start: 20130107, end: 20130111

REACTIONS (5)
  - Pyrexia [Recovered/Resolved]
  - Joint stiffness [Recovered/Resolved]
  - Tetanus [Recovered/Resolved]
  - Trismus [Recovered/Resolved]
  - Chills [Recovered/Resolved]

NARRATIVE: CASE EVENT DATE: 20130109
